FAERS Safety Report 5381829-2 (Version None)
Quarter: 2007Q3

REPORT INFORMATION
  Report Type: 
  Country: None (occurrence: None)
  Receive Date: 20070709
  Receipt Date: 20070627
  Transmission Date: 20080115
  Serious: Yes (Hospitalization)
  Sender: FDA-Public Use
  Company Number: HQWYE465302MAY05

PATIENT
  Sex: Female
  Weight: 66.1 kg

DRUGS (12)
  1. RAPAMUNE [Suspect]
     Indication: PROPHYLAXIS AGAINST TRANSPLANT REJECTION
     Route: 048
     Dates: start: 20040926
  2. RAPAMUNE [Suspect]
     Indication: IMMUNOSUPPRESSANT DRUG THERAPY
  3. PREDNISONE [Concomitant]
     Route: 048
     Dates: start: 20050323
  4. CYCLOSPORINE [Concomitant]
     Route: 048
     Dates: start: 20050401
  5. ATORVASTATIN CALCIUM [Concomitant]
     Route: 048
     Dates: start: 20050323
  6. BROMAZEPAM [Concomitant]
     Route: 048
     Dates: start: 20041218
  7. SULFAMETHOXAZOLE AND TRIMETHOPRIM [Concomitant]
     Route: 048
     Dates: start: 20041126
  8. INSULIN [Concomitant]
     Dosage: REGULAR; 57 UNITS PER DAY
     Route: 058
     Dates: start: 20050328, end: 20050403
  9. INSULIN [Concomitant]
     Route: 058
     Dates: start: 20050404
  10. METFORMIN HCL [Concomitant]
     Route: 048
     Dates: start: 20050326, end: 20050331
  11. PROPRANOLOL [Concomitant]
     Route: 048
     Dates: start: 20041217
  12. OMEPRAZOLE [Concomitant]
     Route: 048
     Dates: start: 20041125

REACTIONS (1)
  - VARICOSE VEIN [None]
